FAERS Safety Report 4982505-8 (Version None)
Quarter: 2006Q2

REPORT INFORMATION
  Report Type: 
  Country: None (occurrence: None)
  Receive Date: 20060421
  Receipt Date: 20060411
  Transmission Date: 20061013
  Serious: Yes (Hospitalization)
  Sender: FDA-Public Use
  Company Number: 2006049850

PATIENT
  Sex: Male

DRUGS (1)
  1. SUTENT [Suspect]
     Indication: RENAL CELL CARCINOMA STAGE UNSPECIFIED

REACTIONS (5)
  - GLOMERULONEPHRITIS [None]
  - LUNG INFILTRATION [None]
  - PETECHIAE [None]
  - RENAL FAILURE [None]
  - VASCULITIS [None]
